FAERS Safety Report 4921493-7 (Version None)
Quarter: 2006Q1

REPORT INFORMATION
  Report Type: 
  Country: None (occurrence: None)
  Receive Date: 20060224
  Receipt Date: 20050926
  Transmission Date: 20060701
  Serious: Yes (Other)
  Sender: FDA-Public Use
  Company Number: PHEH2005US10683

PATIENT
  Sex: Female

DRUGS (6)
  1. ZOMETA [Suspect]
     Indication: BONE DISORDER
     Dosage: UNK, UNK
     Dates: start: 20030702, end: 20040826
  2. CLINDAMYCIN HCL [Concomitant]
     Indication: OSTEOMYELITIS
     Dosage: 300 MG, QD
     Dates: start: 20041102
  3. DEXAMETHASONE SODIUM PHOSPHATE [Concomitant]
     Indication: MULTIPLE MYELOMA
     Dates: end: 20040826
  4. THALIDOMIDE [Concomitant]
     Indication: MULTIPLE MYELOMA
     Dates: end: 20040826
  5. FOLIC ACID [Concomitant]
  6. ASPIRIN [Concomitant]

REACTIONS (10)
  - ABSCESS DRAINAGE [None]
  - BONE DISORDER [None]
  - ERYTHEMA [None]
  - GINGIVAL EROSION [None]
  - HYPERAESTHESIA [None]
  - OSTEOMYELITIS [None]
  - OSTEONECROSIS [None]
  - PAIN [None]
  - PARAESTHESIA [None]
  - SWELLING [None]
